FAERS Safety Report 9989318 (Version 2)
Quarter: 2014Q2

REPORT INFORMATION
  Report Type: Spontaneous
  Country: US (occurrence: US)
  Receive Date: 20140310
  Receipt Date: 20140404
  Transmission Date: 20141212
  Serious: No
  Sender: FDA-Public Use
  Company Number: US-009507513-1403USA003017

PATIENT
  Age: 21 Year
  Sex: Female
  Weight: 99.32 kg

DRUGS (2)
  1. NEXPLANON [Suspect]
     Indication: CONTRACEPTION
     Dosage: 68 MG, 1 ROD
     Route: 059
     Dates: start: 20140305, end: 20140305
  2. NEXPLANON [Suspect]
     Dosage: 68 MG, 1 ROD
     Route: 059
     Dates: start: 20140305

REACTIONS (4)
  - Device expulsion [Recovered/Resolved]
  - Device difficult to use [Recovered/Resolved]
  - Product quality issue [Unknown]
  - No adverse event [Unknown]
